FAERS Safety Report 7518025-6 (Version None)
Quarter: 2011Q2

REPORT INFORMATION
  Report Type: 
  Country: None (occurrence: None)
  Receive Date: 20110602
  Receipt Date: 20110523
  Transmission Date: 20111010
  Serious: Yes (Hospitalization)
  Sender: FDA-Public Use
  Company Number: FR-JNJFOC-20110511699

PATIENT
  Age: 49 Year
  Sex: Male

DRUGS (2)
  1. LEVOFLOXACIN [Suspect]
     Indication: LUNG INFECTION
     Route: 048
     Dates: start: 20101130, end: 20101130
  2. AUGMENTIN [Concomitant]
     Indication: ACUTE SINUSITIS
     Route: 065
     Dates: start: 20101101, end: 20101101

REACTIONS (6)
  - EYE OEDEMA [None]
  - MALAISE [None]
  - LOSS OF CONSCIOUSNESS [None]
  - ERYTHEMA [None]
  - HYPOTENSION [None]
  - ANAPHYLACTIC SHOCK [None]
